FAERS Safety Report 4578651-3 (Version None)
Quarter: 2005Q1

REPORT INFORMATION
  Report Type: 
  Country: None (occurrence: None)
  Receive Date: 20050211
  Receipt Date: 20041223
  Transmission Date: 20050727
  Serious: Yes (Other)
  Sender: FDA-Public Use
  Company Number: DE-MERCK-0412DEU00214

PATIENT
  Age: 55 Year
  Sex: Female

DRUGS (1)
  1. VIOXX [Suspect]
     Route: 048
     Dates: start: 19990101

REACTIONS (5)
  - AORTIC ANEURYSM [None]
  - CARDIAC DISORDER [None]
  - CARDIAC VALVE DISEASE [None]
  - FLUID RETENTION [None]
  - INTESTINAL HAEMORRHAGE [None]
